FAERS Safety Report 8003713-8 (Version None)
Quarter: 2011Q4

REPORT INFORMATION
  Report Type: 
  Country: None (occurrence: None)
  Receive Date: 20111222
  Receipt Date: 20111219
  Transmission Date: 20120403
  Serious: Yes (Other)
  Sender: FDA-Public Use
  Company Number: US-GLAXOSMITHKLINE-A0958656A

PATIENT
  Age: 59 Year
  Sex: Female

DRUGS (1)
  1. CEFTAZIDIME [Suspect]
     Indication: SEPSIS
     Route: 042

REACTIONS (1)
  - NEUROTOXICITY [None]
